FAERS Safety Report 6824566-7 (Version None)
Quarter: 2010Q3

REPORT INFORMATION
  Report Type: 
  Country: None (occurrence: None)
  Receive Date: 20100708
  Receipt Date: 20070102
  Transmission Date: 20110219
  Serious: No
  Sender: FDA-Public Use
  Company Number: US-PFIZER INC-2006132529

PATIENT
  Sex: Female
  Weight: 66.2 kg

DRUGS (9)
  1. CHANTIX [Suspect]
     Indication: SMOKING CESSATION THERAPY
     Route: 048
     Dates: start: 20061016
  2. VITAMINS [Concomitant]
  3. ZINC [Concomitant]
  4. ALL OTHER THERAPEUTIC PRODUCTS [Concomitant]
  5. FISH OIL [Concomitant]
  6. EVENING PRIMROSE OIL [Concomitant]
  7. METHYLSULFONYLMETHANE [Concomitant]
  8. PREVACID [Concomitant]
  9. ALL OTHER THERAPEUTIC PRODUCTS [Concomitant]

REACTIONS (4)
  - DRUG INTOLERANCE [None]
  - DYSGEUSIA [None]
  - NAUSEA [None]
  - RETCHING [None]
